FAERS Safety Report 7682465-5 (Version None)
Quarter: 2011Q3

REPORT INFORMATION
  Report Type: 
  Country: None (occurrence: None)
  Receive Date: 20110810
  Receipt Date: 20110729
  Transmission Date: 20111222
  Serious: Yes (Life-Threatening, Hospitalization)
  Sender: FDA-Public Use
  Company Number: 998223

PATIENT
  Age: 71 Year
  Sex: Female

DRUGS (13)
  1. IMOVANE [Concomitant]
  2. CARABOPLATIN [Concomitant]
  3. SOLU-MEDROL [Concomitant]
  4. PACLITAXEL [Suspect]
     Indication: PRODUCT USED FOR UNKNOWN INDICATION
     Dosage: 141 MG MILLIGRAM(S), INTRAVENOUS (NOT OTHERWISE SPECIFIED)
     Route: 042
     Dates: start: 20110421, end: 20110505
  5. AERIUS /01398501/ [Concomitant]
  6. ATARAX [Concomitant]
  7. LASIX [Concomitant]
  8. ZANTAC [Concomitant]
  9. LEVOTHYROXINE SODIUM [Concomitant]
  10. SERETIDE DISCUS [Concomitant]
  11. GLUCOSE [Concomitant]
  12. LANSOPRAZOLE [Concomitant]
  13. DAFALGAN CODEINE [Concomitant]

REACTIONS (2)
  - CARDIO-RESPIRATORY ARREST [None]
  - SHOCK [None]
